FAERS Safety Report 4786840-8 (Version None)
Quarter: 2005Q3

REPORT INFORMATION
  Report Type: 
  Country: None (occurrence: None)
  Receive Date: 20050930
  Receipt Date: 20050930
  Transmission Date: 20060218
  Serious: Yes (Hospitalization)
  Sender: FDA-Public Use
  Company Number: None

PATIENT
  Age: 78 Year
  Sex: Male
  Weight: 74.8435 kg

DRUGS (1)
  1. LIPITOR [Suspect]
     Indication: DYSLIPIDAEMIA
     Dosage: 20 MG PO
     Route: 048
     Dates: start: 20020104

REACTIONS (4)
  - ABDOMINAL PAIN [None]
  - ASTHENIA [None]
  - FATIGUE [None]
  - LIVER FUNCTION TEST ABNORMAL [None]
